FAERS Safety Report 25221371 (Version 2)
Quarter: 2025Q4

REPORT INFORMATION
  Report Type: Spontaneous
  Country: EU (occurrence: EU)
  Receive Date: 20250421
  Receipt Date: 20251006
  Transmission Date: 20260118
  Serious: Yes (Disabling, Other)
  Sender: PFIZER
  Company Number: EU-PFIZER INC-PV202500045572

PATIENT
  Age: 68 Year
  Sex: Male

DRUGS (9)
  1. CARBOPLATIN [Suspect]
     Active Substance: CARBOPLATIN
     Indication: Metastases to lung
     Dosage: UNK, CYCLIC
  2. CARBOPLATIN [Suspect]
     Active Substance: CARBOPLATIN
     Indication: Metastases to bone
  3. CARBOPLATIN [Suspect]
     Active Substance: CARBOPLATIN
     Indication: Metastases to muscle
  4. ALIMTA [Suspect]
     Active Substance: PEMETREXED DISODIUM
     Indication: Metastases to lung
     Dosage: UNK, CYCLIC
  5. ALIMTA [Suspect]
     Active Substance: PEMETREXED DISODIUM
     Indication: Metastases to bone
  6. ALIMTA [Suspect]
     Active Substance: PEMETREXED DISODIUM
     Indication: Metastases to muscle
  7. PEMBROLIZUMAB [Suspect]
     Active Substance: PEMBROLIZUMAB
     Indication: Metastases to lung
     Dosage: UNK, CYCLIC
  8. PEMBROLIZUMAB [Suspect]
     Active Substance: PEMBROLIZUMAB
     Indication: Metastases to bone
  9. PEMBROLIZUMAB [Suspect]
     Active Substance: PEMBROLIZUMAB
     Indication: Metastases to muscle

REACTIONS (1)
  - Mononeuritis [Recovering/Resolving]
